FAERS Safety Report 9187194 (Version 1)
Quarter: 2013Q1

REPORT INFORMATION
  Report Type: Report from Study
  Country: CA (occurrence: CA)
  Receive Date: 20130325
  Receipt Date: 20130325
  Transmission Date: 20140127
  Serious: Yes (Hospitalization, Other)
  Sender: FDA-Public Use
  Company Number: CA-JNJFOC-20130111176

PATIENT
  Age: 53 Year
  Sex: Female
  Weight: 70.6 kg

DRUGS (7)
  1. REMICADE [Suspect]
     Indication: RHEUMATOID ARTHRITIS
     Route: 042
     Dates: start: 20080415
  2. METHOTREXATE [Concomitant]
     Dosage: 8 TABLETS
     Route: 048
  3. NAPROXEN [Concomitant]
     Route: 065
  4. AMITRIPTYLINE [Concomitant]
     Route: 065
  5. TYLENOL NO.3 [Concomitant]
     Dosage: 3 TABLET
     Route: 065
  6. DEMEROL [Concomitant]
     Route: 065
  7. PREVACID [Concomitant]
     Route: 065

REACTIONS (1)
  - Sinus operation [Recovered/Resolved]
